FAERS Safety Report 8428485-4 (Version None)
Quarter: 2012Q2

REPORT INFORMATION
  Report Type: 
  Country: None (occurrence: None)
  Receive Date: 20120612
  Receipt Date: 20120605
  Transmission Date: 20120825
  Serious: No
  Sender: FDA-Public Use
  Company Number: US-PFIZER INC-2011186043

PATIENT
  Sex: Female
  Weight: 29.478 kg

DRUGS (7)
  1. GENOTROPIN [Suspect]
     Indication: FAILURE TO THRIVE
     Dosage: 1.6 MG, 1X/DAY
     Route: 058
  2. RITALIN [Concomitant]
     Dosage: 5 MG, UNK
  3. ASMANEX TWISTHALER [Concomitant]
     Dosage: 110 UG, UNK
  4. FLONASE [Concomitant]
     Dosage: UNK
  5. CLARITIN [Concomitant]
     Dosage: 10 MG, UNK
  6. MAGNESIUM HYDROXIDE [Concomitant]
     Dosage: 400 MG, UNK
  7. MOTRIN IB [Concomitant]
     Dosage: 200 MG, UNK

REACTIONS (3)
  - DRUG INEFFECTIVE [None]
  - HEADACHE [None]
  - MUSCLE SPASMS [None]
